FAERS Safety Report 21945066 (Version 1)
Quarter: 2023Q1

REPORT INFORMATION
  Report Type: Spontaneous
  Country: None (occurrence: NL)
  Receive Date: 20230202
  Receipt Date: 20230202
  Transmission Date: 20230417
  Serious: Yes (Other)
  Sender: FDA-Public Use
  Company Number: NL-Nova Laboratories Limited-2137423

PATIENT
  Sex: Female

DRUGS (5)
  1. PURIXAN [Suspect]
     Active Substance: MERCAPTOPURINE
     Indication: Langerhans^ cell histiocytosis
  2. VINBLASTINE SULFATE [Suspect]
     Active Substance: VINBLASTINE SULFATE
  3. PREDNISONE [Suspect]
     Active Substance: PREDNISONE
  4. VINCRISTINE [Suspect]
     Active Substance: VINCRISTINE
  5. CYTARABINE [Suspect]
     Active Substance: CYTARABINE

REACTIONS (2)
  - Langerhans^ cell histiocytosis [Unknown]
  - Off label use [None]
